FAERS Safety Report 20750841 (Version 1)
Quarter: 2022Q2

REPORT INFORMATION
  Report Type: Spontaneous
  Country: HR (occurrence: None)
  Receive Date: 20220426
  Receipt Date: 20220426
  Transmission Date: 20220721
  Serious: Yes (Other)
  Sender: FDA-Public Use
  Company Number: HR-ROCHE-3083677

PATIENT
  Age: 23 Year
  Sex: Female

DRUGS (2)
  1. RIVOTRIL [Suspect]
     Active Substance: CLONAZEPAM
     Indication: Completed suicide
     Dosage: (6 TABLETS OF 0.5 MG)
     Route: 048
     Dates: start: 20220330, end: 20220330
  2. NORMABEL [Suspect]
     Active Substance: DIAZEPAM
     Indication: Completed suicide
     Dosage: 150 MG, DAILY (30 TABLETS OF 5MG)
     Route: 048
     Dates: start: 20220330, end: 20220330

REACTIONS (2)
  - Suicide attempt [Unknown]
  - Intentional overdose [Unknown]

NARRATIVE: CASE EVENT DATE: 20220330
